FAERS Safety Report 11514790 (Version 1)
Quarter: 2015Q3

REPORT INFORMATION
  Report Type: Spontaneous
  Country: FR (occurrence: FR)
  Receive Date: 20150916
  Receipt Date: 20150916
  Transmission Date: 20151125
  Serious: Yes (Other)
  Sender: FDA-Public Use
  Company Number: FR-009507513-1509FRA006162

PATIENT
  Age: 92 Year
  Sex: Female

DRUGS (9)
  1. SPECIAFOLDINE [Concomitant]
     Active Substance: FOLIC ACID
  2. BRICANYL [Concomitant]
     Active Substance: TERBUTALINE SULFATE
  3. TIENAM IV 250MG/250MG, POUDRE POUR PERFUSION [Suspect]
     Active Substance: CILASTATIN SODIUM\IMIPENEM
     Indication: PSEUDOMONAS INFECTION
     Dosage: 3 G, QD
     Route: 042
     Dates: start: 20150707, end: 20150717
  4. ATROVENT [Concomitant]
     Active Substance: IPRATROPIUM BROMIDE
  5. NIFLURIL (MORNIFLUMATE) [Concomitant]
     Active Substance: MORNIFLUMATE
  6. PREVISCAN [Concomitant]
     Active Substance: FLUINDIONE
  7. FORADIL [Concomitant]
     Active Substance: FORMOTEROL FUMARATE
  8. LASILIX [Concomitant]
     Active Substance: FUROSEMIDE
  9. SPIRIVA [Concomitant]
     Active Substance: TIOTROPIUM BROMIDE MONOHYDRATE

REACTIONS (3)
  - Dyspnoea [Recovered/Resolved]
  - Tonic clonic movements [Recovered/Resolved]
  - Agitation [Recovered/Resolved]

NARRATIVE: CASE EVENT DATE: 20150717
